FAERS Safety Report 21421145 (Version 1)
Quarter: 2022Q4

REPORT INFORMATION
  Report Type: Spontaneous
  Country: GR (occurrence: GR)
  Receive Date: 20221007
  Receipt Date: 20221007
  Transmission Date: 20230112
  Serious: Yes (Hospitalization, Other)
  Sender: FDA-Public Use
  Company Number: GR-009507513-2209GRC004139

PATIENT
  Sex: Male

DRUGS (1)
  1. KEYTRUDA [Suspect]
     Active Substance: PEMBROLIZUMAB
     Indication: Colorectal cancer
     Dosage: 200 MILLIGRAM, EVERY 3 WEEKS
     Dates: start: 202201, end: 20220512

REACTIONS (8)
  - Pneumonia [Unknown]
  - Hypoxia [Unknown]
  - Pyrexia [Unknown]
  - Anaemia [Unknown]
  - Pleural effusion [Recovered/Resolved]
  - Lung infiltration [Recovering/Resolving]
  - Lymphadenopathy mediastinal [Recovering/Resolving]
  - Pneumonitis [Unknown]

NARRATIVE: CASE EVENT DATE: 20220101
